FAERS Safety Report 21081505 (Version 1)
Quarter: 2022Q3

REPORT INFORMATION
  Report Type: Spontaneous
  Country: US (occurrence: None)
  Receive Date: 20220713
  Receipt Date: 20220713
  Transmission Date: 20221026
  Serious: Yes (Life-Threatening, Hospitalization, Disabling)
  Sender: FDA-Public Use
  Company Number: None

PATIENT
  Age: 85 Year
  Sex: Female
  Weight: 90.3 kg

DRUGS (4)
  1. ALTEPLASE [Suspect]
     Active Substance: ALTEPLASE
     Indication: Ischaemic stroke
     Dosage: FREQUENCY : ONCE;?
     Route: 042
     Dates: start: 20211009, end: 20211009
  2. LORAZEPAM [Concomitant]
     Active Substance: LORAZEPAM
     Dates: start: 20211009, end: 20211009
  3. CLOPIDOGREL [Concomitant]
     Active Substance: CLOPIDOGREL BISULFATE
     Dates: start: 20200925
  4. ANASTROZOLE [Concomitant]
     Active Substance: ANASTROZOLE
     Dates: start: 20210930

REACTIONS (2)
  - Haemorrhagic transformation stroke [None]
  - Cerebral haemorrhage [None]

NARRATIVE: CASE EVENT DATE: 20211009
